FAERS Safety Report 7278645-3 (Version None)
Quarter: 2011Q1

REPORT INFORMATION
  Report Type: 
  Country: None (occurrence: None)
  Receive Date: 20110207
  Receipt Date: 20110202
  Transmission Date: 20110831
  Serious: No
  Sender: FDA-Public Use
  Company Number: US-PFIZER INC-2011024853

PATIENT
  Sex: Female

DRUGS (2)
  1. FLUCONAZOLE [Suspect]
     Indication: ENDOCARDITIS CANDIDA
     Dosage: UNK
  2. FLUCONAZOLE [Suspect]
     Indication: OSTEOMYELITIS

REACTIONS (1)
  - ANTIMICROBIAL SUSCEPTIBILITY TEST RESISTANT [None]
